FAERS Safety Report 5211601-5 (Version None)
Quarter: 2007Q1

REPORT INFORMATION
  Report Type: 
  Country: None (occurrence: None)
  Receive Date: 20070118
  Receipt Date: 20070108
  Transmission Date: 20070707
  Serious: Yes (Life-Threatening, Other)
  Sender: FDA-Public Use
  Company Number: GB-JNJFOC-20070102498

PATIENT
  Age: 74 Year
  Sex: Female

DRUGS (7)
  1. REMICADE [Suspect]
     Indication: RHEUMATOID ARTHRITIS
     Route: 042
  2. ASPIRIN [Concomitant]
     Route: 065
  3. LOSARTAN POTASSIUM [Concomitant]
     Route: 065
  4. METHOTREXATE [Concomitant]
     Route: 065
  5. PARACETAMOL [Concomitant]
     Route: 065
  6. RANITIDINE [Concomitant]
     Route: 065
  7. HRT [Concomitant]

REACTIONS (1)
  - PERITONEAL CARCINOMA [None]
